FAERS Safety Report 8972810 (Version 2)
Quarter: 2013Q1

REPORT INFORMATION
  Report Type: Spontaneous
  Country: US (occurrence: None)
  Receive Date: 20121210
  Receipt Date: 20121210
  Transmission Date: 20140127
  Serious: Yes (Hospitalization, Disabling, Other)
  Sender: FDA-Public Use
  Company Number: ACO_33199_2012

PATIENT
  Age: 60 Year
  Sex: Female
  Weight: 85.7 kg

DRUGS (14)
  1. AMPYRA (DALFAMPRIDINE) TABLET, 10MG [Suspect]
     Indication: GAIT DISTURBANCE
     Dosage: Q 12 HRS
     Route: 048
     Dates: start: 20121028, end: 20121115
  2. NADOLOL (NADOLOL) [Suspect]
     Indication: PRODUCT USED FOR UNKNOWN INDICATION
     Dates: end: 20121115
  3. AVONEX (INTERFERON BETA-1A) [Suspect]
  4. ASPIRIN (ACETYLSALICYLIC ACID) [Concomitant]
  5. LOSARTAN (LOSARTAN POTASSIUM) [Concomitant]
  6. CYMBALTA (DULOXETINE HYDROCHLORIDE) [Concomitant]
  7. GEMFIBROZIL (GEMFIBRPZIL) [Concomitant]
  8. MECLIZINE (MECLIZINE) [Concomitant]
  9. METFORMIN (METFORMIN HYDROCHLORIDE) [Concomitant]
  10. OXYBUTIN (OXYBUTYNIN HYDROCHLORIDE) [Concomitant]
  11. PRAVASTATIN (PRAVASTATIN SODIUM) [Concomitant]
  12. TOPAMAX (TOPIRAMATE) [Concomitant]
  13. AMANTADINE (AMANTADINE HYDROCHLORIDE) [Concomitant]
  14. BACLOFEN (BACLOFEN) [Concomitant]

REACTIONS (7)
  - Bradycardia [None]
  - Aphasia [None]
  - Abasia [None]
  - Blood pressure abnormal [None]
  - Multiple sclerosis relapse [None]
  - Tremor [None]
  - Feeling hot [None]
